FAERS Safety Report 8368389-9 (Version None)
Quarter: 2012Q2

REPORT INFORMATION
  Report Type: 
  Country: None (occurrence: None)
  Receive Date: 20120517
  Receipt Date: 20120507
  Transmission Date: 20120825
  Serious: Yes (Hospitalization, Other)
  Sender: FDA-Public Use
  Company Number: US-ELI_LILLY_AND_COMPANY-US201108007390

PATIENT
  Sex: Female

DRUGS (14)
  1. FORTEO [Suspect]
     Dosage: 20 UG, QD
  2. CLONIDINE [Concomitant]
     Dosage: UNK, BID
  3. TRAZODONE HCL [Concomitant]
     Dosage: 50 MG, QD
  4. ALLOPURINOL [Concomitant]
     Dosage: 50 MG, QD
  5. AGGRENOX [Concomitant]
     Indication: CEREBROVASCULAR ACCIDENT
     Dosage: UNK, BID
  6. LORATADINE [Concomitant]
     Dosage: 10 MG, QD
  7. SULFAMETHIZOLE TAB [Concomitant]
     Dosage: 0.5 DF, QD
  8. COLCRYS [Concomitant]
  9. PANTOPRAZOLE [Concomitant]
  10. FORTEO [Suspect]
     Dosage: 20 UG, QD
  11. VITAMIN D [Concomitant]
  12. PRILOSEC [Concomitant]
     Dosage: 20 MG, QD
  13. FORTEO [Suspect]
     Indication: OSTEOPOROSIS
     Dosage: 20 UG, QD
     Dates: start: 20110501
  14. METOPROLOL [Concomitant]
     Dosage: 100 MG, QD

REACTIONS (15)
  - MENTAL IMPAIRMENT [None]
  - DIARRHOEA [None]
  - BLOOD PRESSURE INCREASED [None]
  - HYPOAESTHESIA [None]
  - RENAL FAILURE [None]
  - HEART RATE INCREASED [None]
  - DRY SKIN [None]
  - GOUT [None]
  - EYE DISORDER [None]
  - MACULAR DEGENERATION [None]
  - ONYCHOMADESIS [None]
  - SKIN DISORDER [None]
  - CEREBROVASCULAR ACCIDENT [None]
  - SKIN INJURY [None]
  - VISUAL FIELD DEFECT [None]
